FAERS Safety Report 16596746 (Version 1)
Quarter: 2019Q3

REPORT INFORMATION
  Report Type: Spontaneous
  Country: US (occurrence: US)
  Receive Date: 20190719
  Receipt Date: 20190719
  Transmission Date: 20191004
  Serious: Yes (Hospitalization, Other)
  Sender: FDA-Public Use
  Company Number: US-CIPLA LTD.-2019US02116

PATIENT

DRUGS (2)
  1. TERBINAFINE. [Suspect]
     Active Substance: TERBINAFINE
     Indication: ONYCHOMYCOSIS
     Dosage: 250 MILLIGRAM, ONE PILL EVERY DAY FOR ONE WEEK AND OFF FOR THREE WEEKS
     Route: 048
     Dates: start: 20190324, end: 20190331
  2. ATORVASTATIN [Concomitant]
     Active Substance: ATORVASTATIN
     Indication: PRODUCT USED FOR UNKNOWN INDICATION
     Dosage: UNK, FROM MANY YEARS
     Route: 065
     Dates: end: 20190315

REACTIONS (7)
  - Constipation [Recovered/Resolved]
  - Flatulence [Not Recovered/Not Resolved]
  - Pancreatitis [Recovering/Resolving]
  - Abdominal pain upper [Not Recovered/Not Resolved]
  - Product substitution issue [Unknown]
  - Abdominal discomfort [Not Recovered/Not Resolved]
  - Hiccups [Not Recovered/Not Resolved]

NARRATIVE: CASE EVENT DATE: 20190402
